FAERS Safety Report 24168438 (Version 2)
Quarter: 2024Q3

REPORT INFORMATION
  Report Type: Spontaneous
  Country: JP (occurrence: None)
  Receive Date: 20240802
  Receipt Date: 20240805
  Transmission Date: 20241016
  Serious: Yes (Death)
  Sender: ASTRAZENECA
  Company Number: 2024A174959

PATIENT
  Sex: Female

DRUGS (2)
  1. ONDEXXYA [Suspect]
     Active Substance: ANDEXANET ALFA
     Dosage: DOSE UNKNOWN 1000.0MG UNKNOWN
     Route: 040
     Dates: start: 20240723, end: 20240723
  2. ELIQUIS [Concomitant]
     Active Substance: APIXABAN
     Dosage: DOSE UNKNOWN

REACTIONS (1)
  - Myocardial rupture [Fatal]

NARRATIVE: CASE EVENT DATE: 20240724
